FAERS Safety Report 10408504 (Version 1)
Quarter: 2014Q3

REPORT INFORMATION
  Report Type: Spontaneous
  Country: GB (occurrence: None)
  Receive Date: 20140821
  Receipt Date: 20140821
  Transmission Date: 20150326
  Serious: Yes (Hospitalization)
  Sender: FDA-Public Use
  Company Number: IMP_07837_2014

PATIENT
  Age: 76 Year
  Sex: Female

DRUGS (5)
  1. METFORMIN (UNKNOWN) [Concomitant]
     Active Substance: METFORMIN HYDROCHLORIDE
  2. BISOPROLOL (UNKNOWN) [Concomitant]
     Active Substance: BISOPROLOL
  3. SODIUM VALPROATE [Suspect]
     Active Substance: VALPROATE SODIUM
     Indication: HEMIPLEGIC MIGRAINE
  4. DOXAZOSIN [Concomitant]
     Active Substance: DOXAZOSIN\DOXAZOSIN MESYLATE
  5. LISINOPRIL (UNKNOWN) [Concomitant]
     Active Substance: LISINOPRIL

REACTIONS (9)
  - Aggression [None]
  - Persecutory delusion [None]
  - Treatment noncompliance [None]
  - Confusional state [None]
  - Hallucination, auditory [None]
  - Encephalitis autoimmune [None]
  - Drug level below therapeutic [None]
  - Toxic encephalopathy [None]
  - Refusal of treatment by patient [None]
